FAERS Safety Report 5739177-4 (Version None)
Quarter: 2008Q2

REPORT INFORMATION
  Report Type: 
  Country: None (occurrence: None)
  Receive Date: 20080515
  Receipt Date: 20080513
  Transmission Date: 20081010
  Serious: Yes (Other)
  Sender: FDA-Public Use
  Company Number: D0056563A

PATIENT
  Age: 78 Year
  Sex: Male

DRUGS (2)
  1. VIANI DISKUS [Suspect]
     Dosage: 600MCG TWICE PER DAY
     Route: 055
     Dates: start: 20080314, end: 20080316
  2. SALOFALK [Concomitant]
     Route: 065

REACTIONS (2)
  - LIP SWELLING [None]
  - LUNG NEOPLASM MALIGNANT [None]
